FAERS Safety Report 5636873-4 (Version None)
Quarter: 2008Q1

REPORT INFORMATION
  Report Type: 
  Country: None (occurrence: None)
  Receive Date: 20080225
  Receipt Date: 20080213
  Transmission Date: 20080703
  Serious: Yes (Death, Other)
  Sender: FDA-Public Use
  Company Number: US-ELI_LILLY_AND_COMPANY-US200802003473

PATIENT
  Age: 49 Year
  Sex: Female

DRUGS (8)
  1. ZYPREXA [Suspect]
     Route: 048
  2. PROPOXYPHENE HCL AND ACETAMINOPHEN [Concomitant]
  3. DIAZEPAM [Concomitant]
  4. VENLAFAXINE HCL [Concomitant]
  5. CODEINE PHOSPHATE [Concomitant]
  6. GABAPENTIN [Concomitant]
  7. MIRTAZAPINE [Concomitant]
  8. METOPROLOL TARTRATE [Concomitant]

REACTIONS (1)
  - INTENTIONAL DRUG MISUSE [None]
